FAERS Safety Report 7657985-X (Version None)
Quarter: 2011Q3

REPORT INFORMATION
  Report Type: 
  Country: None (occurrence: None)
  Receive Date: 20110805
  Receipt Date: 20110722
  Transmission Date: 20111222
  Serious: Yes (Other)
  Sender: FDA-Public Use
  Company Number: CN-RANBAXY-2011RR-46589

PATIENT
  Age: 59 Year
  Sex: Male

DRUGS (6)
  1. CARBOPLATIN [Suspect]
     Indication: SQUAMOUS CELL CARCINOMA
  2. DOXYCYCLINE [Suspect]
     Indication: SQUAMOUS CELL CARCINOMA
  3. CARBOPLATIN [Suspect]
     Indication: CHEMOTHERAPY
     Route: 065
  4. DOXYCYCLINE [Suspect]
     Indication: CHEMOTHERAPY
     Route: 065
  5. CETUXIMAB [Suspect]
     Indication: SQUAMOUS CELL CARCINOMA
     Dosage: 400 MG/M2, 1/WEEK
     Route: 042
  6. CETUXIMAB [Suspect]
     Dosage: 250 MG/M2, 1/WEEK
     Route: 042

REACTIONS (2)
  - RASH [None]
  - HAEMATOTOXICITY [None]
